FAERS Safety Report 9886433 (Version 2)
Quarter: 2014Q2

REPORT INFORMATION
  Report Type: Spontaneous
  Country: US (occurrence: US)
  Receive Date: 20140210
  Receipt Date: 20140521
  Transmission Date: 20141212
  Serious: Yes (Other)
  Sender: FDA-Public Use
  Company Number: PHEH2014US002646

PATIENT
  Sex: Male

DRUGS (4)
  1. EXELON PATCH [Suspect]
     Dosage: 9.5 MG, DAILY
     Route: 062
  2. EXELON PATCH [Suspect]
     Dosage: UNK
     Route: 062
     Dates: start: 201106
  3. EXELON PATCH [Suspect]
     Dosage: UNK
     Route: 062
     Dates: start: 20131007
  4. NAMENDA [Concomitant]
     Dosage: UNK

REACTIONS (3)
  - Neoplasm malignant [Unknown]
  - Dementia [Not Recovered/Not Resolved]
  - Dementia Alzheimer^s type [Not Recovered/Not Resolved]
